FAERS Safety Report 13677063 (Version 18)
Quarter: 2018Q4

REPORT INFORMATION
  Report Type: Report from Study
  Country: AU (occurrence: AU)
  Receive Date: 20170622
  Receipt Date: 20181116
  Transmission Date: 20190204
  Serious: Yes (Hospitalization, Other)
  Sender: FDA-Public Use
  Company Number: PHHY2017AU091344

PATIENT
  Age: 52 Year
  Sex: Female
  Weight: 67 kg

DRUGS (6)
  1. ZOLOFT [Concomitant]
     Active Substance: SERTRALINE HYDROCHLORIDE
     Indication: DEPRESSION
     Dosage: 50 MG, QD
     Route: 048
     Dates: start: 20170919
  2. REMIFEMIN [Concomitant]
     Active Substance: BLACK COHOSH
     Indication: PRODUCT USED FOR UNKNOWN INDICATION
     Dosage: UNK
     Route: 065
     Dates: start: 2006
  3. VITAMIN D [Concomitant]
     Active Substance: CHOLECALCIFEROL
     Indication: PRODUCT USED FOR UNKNOWN INDICATION
     Dosage: UNK
     Route: 065
  4. GILENYA [Suspect]
     Active Substance: FINGOLIMOD HYDROCHLORIDE
     Indication: RELAPSING-REMITTING MULTIPLE SCLEROSIS
     Dosage: 0.5 MG, QD
     Route: 048
     Dates: start: 20150821
  5. GILENYA [Suspect]
     Active Substance: FINGOLIMOD HYDROCHLORIDE
     Dosage: 0.5 MG, QD
     Route: 048
     Dates: start: 20160114
  6. GILENYA [Suspect]
     Active Substance: FINGOLIMOD HYDROCHLORIDE
     Dosage: UNK
     Route: 065
     Dates: start: 20181009

REACTIONS (40)
  - Post-traumatic neck syndrome [Recovering/Resolving]
  - Sensory disturbance [Not Recovered/Not Resolved]
  - Pain [Not Recovered/Not Resolved]
  - Eye disorder [Unknown]
  - Visual impairment [Recovering/Resolving]
  - Headache [Not Recovered/Not Resolved]
  - Speech disorder [Recovered/Resolved]
  - Peripheral swelling [Recovered/Resolved]
  - Aphasia [Not Recovered/Not Resolved]
  - Vitreous prolapse [Recovering/Resolving]
  - Psychiatric symptom [Not Recovered/Not Resolved]
  - Dysphemia [Not Recovered/Not Resolved]
  - Tooth abscess [Recovered/Resolved]
  - Fall [Recovered/Resolved]
  - Inflammation [Recovering/Resolving]
  - Fall [Unknown]
  - Vitreous detachment [Recovered/Resolved]
  - Glaucoma [Not Recovered/Not Resolved]
  - Laryngitis [Not Recovered/Not Resolved]
  - Influenza [Not Recovered/Not Resolved]
  - Feeling cold [Not Recovered/Not Resolved]
  - Balance disorder [Not Recovered/Not Resolved]
  - Nasopharyngitis [Recovered/Resolved]
  - Aphonia [Unknown]
  - Fatigue [Recovered/Resolved]
  - Fatigue [Recovering/Resolving]
  - Sensitive skin [Not Recovered/Not Resolved]
  - Intracranial aneurysm [Recovered/Resolved]
  - Concomitant disease aggravated [Recovered/Resolved]
  - Hemianaesthesia [Not Recovered/Not Resolved]
  - Feeling abnormal [Recovered/Resolved]
  - Synovial cyst [Recovered/Resolved]
  - Weight decreased [Recovering/Resolving]
  - Stress [Recovering/Resolving]
  - Insomnia [Not Recovered/Not Resolved]
  - Temperature intolerance [Recovered/Resolved]
  - Spinal pain [Not Recovered/Not Resolved]
  - Muscular weakness [Not Recovered/Not Resolved]
  - Cognitive disorder [Not Recovered/Not Resolved]
  - Vision blurred [Recovered/Resolved]

NARRATIVE: CASE EVENT DATE: 201510
